FAERS Safety Report 23827490 (Version 1)
Quarter: 2024Q2

REPORT INFORMATION
  Report Type: Spontaneous
  Country: US (occurrence: None)
  Receive Date: 20240506
  Receipt Date: 20240506
  Transmission Date: 20240716
  Serious: Yes (Other)
  Sender: FDA-Public Use
  Company Number: None

PATIENT
  Age: 66 Year
  Sex: Male
  Weight: 59.4 kg

DRUGS (7)
  1. LASTACAFT [Suspect]
     Active Substance: ALCAFTADINE
     Indication: Seasonal allergy
     Dosage: OTHER QUANTITY : .17 OUNCE(S);?FREQUENCY : TWICE A DAY;?
     Route: 047
     Dates: start: 20240417, end: 20240422
  2. ROSUVASTATIN [Concomitant]
     Active Substance: ROSUVASTATIN
  3. METFORMIN [Concomitant]
     Active Substance: METFORMIN HYDROCHLORIDE
  4. TRULICITY [Concomitant]
     Active Substance: DULAGLUTIDE
  5. TAMSULOSIN [Concomitant]
     Active Substance: TAMSULOSIN
  6. PANTOPRAZOLE [Concomitant]
     Active Substance: PANTOPRAZOLE
  7. DAILY ADULT OVER 50 VITAMINE [Concomitant]

REACTIONS (4)
  - Eyelids pruritus [None]
  - Swelling of eyelid [None]
  - Erythema of eyelid [None]
  - Drug ineffective [None]

NARRATIVE: CASE EVENT DATE: 20240422
